FAERS Safety Report 9686256 (Version 2)
Quarter: 2013Q4

REPORT INFORMATION
  Report Type: Spontaneous
  Country: GB (occurrence: GB)
  Receive Date: 20131113
  Receipt Date: 20131126
  Transmission Date: 20140711
  Serious: Yes (Other)
  Sender: FDA-Public Use
  Company Number: GB-WATSON-2013-20751

PATIENT
  Sex: Male

DRUGS (1)
  1. BACLOFEN (UNKNOWN) [Suspect]
     Indication: PRODUCT USED FOR UNKNOWN INDICATION
     Dosage: 285 ?G/ML, UNKNOWN FREQUENCY
     Route: 037

REACTIONS (3)
  - Muscle spasticity [Recovering/Resolving]
  - Condition aggravated [Recovering/Resolving]
  - Hypertonia [Recovering/Resolving]
